FAERS Safety Report 16739868 (Version 1)
Quarter: 2019Q3

REPORT INFORMATION
  Report Type: Spontaneous
  Country: JP (occurrence: JP)
  Receive Date: 20190826
  Receipt Date: 20190826
  Transmission Date: 20191005
  Serious: Yes (Hospitalization, Other)
  Sender: FDA-Public Use
  Company Number: JP-MICRO LABS LIMITED-ML2019-02021

PATIENT
  Age: 78 Year
  Sex: Male

DRUGS (6)
  1. CEFCAPENE PIVOXIL [Suspect]
     Active Substance: CEFCAPENE PIVOXIL
  2. GARENOXACIN [Suspect]
     Active Substance: GARENOXACIN
  3. MEROPENEM. [Suspect]
     Active Substance: MEROPENEM
  4. CEFTRIAXONE. [Suspect]
     Active Substance: CEFTRIAXONE
  5. MICAFUNGIN. [Suspect]
     Active Substance: MICAFUNGIN SODIUM
  6. LEVOFLOXACIN. [Suspect]
     Active Substance: LEVOFLOXACIN

REACTIONS (1)
  - Factor V inhibition [Recovered/Resolved]
